FAERS Safety Report 7808182-6 (Version None)
Quarter: 2011Q4

REPORT INFORMATION
  Report Type: 
  Country: None (occurrence: None)
  Receive Date: 20111011
  Receipt Date: 20111006
  Transmission Date: 20120403
  Serious: Yes (Other)
  Sender: FDA-Public Use
  Company Number: KR-ALLERGAN-1113221US

PATIENT
  Sex: Female

DRUGS (1)
  1. EPINASTINE HYDROCHLORIDE [Suspect]
     Indication: PRODUCT USED FOR UNKNOWN INDICATION

REACTIONS (3)
  - PREGNANCY [None]
  - MATERNAL EXPOSURE DURING PREGNANCY [None]
  - ABORTION INDUCED [None]
